FAERS Safety Report 8249519-6 (Version None)
Quarter: 2012Q1

REPORT INFORMATION
  Report Type: 
  Country: None (occurrence: None)
  Receive Date: 20120316
  Receipt Date: 20110201
  Transmission Date: 20120608
  Serious: Yes (Other)
  Sender: FDA-Public Use
  Company Number: PHHY2010US89907

PATIENT
  Age: 64 Year
  Sex: Female

DRUGS (3)
  1. TENORMIN [Suspect]
     Dosage: 75MG, BID
  2. TEKTURNA [Suspect]
     Dosage: 150 MG, ORAL; 300 MG PER DAY, ORAL
     Route: 048
  3. VERAPAMIL [Suspect]
     Dosage: HALF TABLET ONCE A DAY, ORAL
     Route: 048

REACTIONS (3)
  - BLOOD PRESSURE DIASTOLIC DECREASED [None]
  - HYPERTENSION [None]
  - BLOOD PRESSURE INADEQUATELY CONTROLLED [None]
